FAERS Safety Report 5333246-9 (Version None)
Quarter: 2007Q2

REPORT INFORMATION
  Report Type: 
  Country: None (occurrence: None)
  Receive Date: 20070524
  Receipt Date: 20070518
  Transmission Date: 20071010
  Serious: Yes (Other)
  Sender: FDA-Public Use
  Company Number: US-AMGEN-US224104

PATIENT
  Sex: Female
  Weight: 74.9 kg

DRUGS (9)
  1. ARANESP [Suspect]
     Indication: RENAL FAILURE CHRONIC
     Route: 058
     Dates: start: 20040101, end: 20070402
  2. TRICOR [Concomitant]
  3. ZOLOFT [Concomitant]
  4. ASPIRIN [Concomitant]
  5. SYNTHROID [Concomitant]
  6. FLONASE [Concomitant]
  7. AMITRIPTYLINE HCL [Concomitant]
  8. ALTACE [Concomitant]
  9. PREDNISONE TAB [Concomitant]

REACTIONS (2)
  - RASH [None]
  - VASCULITIS [None]
